FAERS Safety Report 8415791-2 (Version None)
Quarter: 2012Q2

REPORT INFORMATION
  Report Type: 
  Country: None (occurrence: None)
  Receive Date: 20120530
  Receipt Date: 20120517
  Transmission Date: 20120825
  Serious: Yes (Hospitalization)
  Sender: FDA-Public Use
  Company Number: JPI-P-012985

PATIENT
  Age: 63 Year
  Sex: Male

DRUGS (10)
  1. INSULIN GLARGINE [Concomitant]
  2. VENLAFAXINE HCL [Concomitant]
  3. XYREM [Suspect]
     Indication: CATAPLEXY
     Dosage: 4.5 GM (2.25 GM, 2 IN 1 D), ORAL, 7.5 GM (3.75 GM, 2 IN 1 D), ORAL, 6 GM (3 GM, 2 IN 1 D), ORAL
     Route: 048
     Dates: start: 20100430
  4. XYREM [Suspect]
     Indication: CATAPLEXY
     Dosage: 4.5 GM (2.25 GM, 2 IN 1 D), ORAL, 7.5 GM (3.75 GM, 2 IN 1 D), ORAL, 6 GM (3 GM, 2 IN 1 D), ORAL
     Route: 048
     Dates: start: 20100209, end: 20100101
  5. METHYLPHENIDATE HCL [Concomitant]
  6. LISINOPRIL [Concomitant]
  7. XYREM [Suspect]
     Indication: CATAPLEXY
     Dosage: ORAL
     Route: 048
     Dates: start: 20100101, end: 20100101
  8. METFORMIN HCL [Concomitant]
  9. SIMVASTATIN [Concomitant]
  10. PIOGLITAZONE HYDROCHLORIDE [Concomitant]

REACTIONS (3)
  - ENURESIS [None]
  - DIABETES MELLITUS INADEQUATE CONTROL [None]
  - BLADDER CANCER [None]
